FAERS Safety Report 9526899 (Version 1)
Quarter: 2013Q1

REPORT INFORMATION
  Report Type: Spontaneous
  Country: US (occurrence: None)
  Receive Date: 20130311
  Receipt Date: 20130311
  Transmission Date: 20140127
  Serious: No
  Sender: FDA-Public Use
  Company Number: 1212USA009778

PATIENT
  Sex: Female

DRUGS (1)
  1. ZIOPTAN (TAFLUPROST) EYE DROPS, SOLUTION, 0.0015% [Suspect]
     Indication: ABNORMAL SENSATION IN EYE
     Dosage: 1DROP O/U, HS, OPHTHALMIC
     Route: 047
     Dates: start: 201212, end: 20121219

REACTIONS (1)
  - Rash [None]
